FAERS Safety Report 8359456-4 (Version None)
Quarter: 2012Q2

REPORT INFORMATION
  Report Type: 
  Country: None (occurrence: None)
  Receive Date: 20120515
  Receipt Date: 20120508
  Transmission Date: 20120825
  Serious: Yes (Other)
  Sender: FDA-Public Use
  Company Number: JP-ACCORD-008543

PATIENT
  Age: 78 Year
  Sex: Female

DRUGS (2)
  1. UFT [Concomitant]
  2. ANASTROZOLE [Suspect]

REACTIONS (2)
  - DRUG TOLERANCE [None]
  - DISEASE RECURRENCE [None]
